FAERS Safety Report 8875719 (Version 2)
Quarter: 2012Q4

REPORT INFORMATION
  Report Type: 
  Country: DK (occurrence: DK)
  Receive Date: 20121030
  Receipt Date: 20121123
  Transmission Date: 20130627
  Serious: Yes (Hospitalization, Other)
  Sender: FDA-Public Use
  Company Number: PHHY2012DK097301

PATIENT
  Age: 20 Year
  Sex: Male

DRUGS (2)
  1. METHYLPHENIDATE HYDROCHLORIDE [Suspect]
     Indication: ATTENTION DEFICIT/HYPERACTIVITY DISORDER
     Dosage: 600 mg, UNK
  2. METHYLPHENIDATE HYDROCHLORIDE [Suspect]
     Dosage: 10 mg, daily

REACTIONS (10)
  - Pulmonary embolism [Unknown]
  - Chronic obstructive pulmonary disease [Unknown]
  - Chest pain [Unknown]
  - Myocarditis [Unknown]
  - Arteriospasm coronary [Unknown]
  - Cardiac contusion [Unknown]
  - Acute myocardial infarction [Unknown]
  - Intentional drug misuse [Unknown]
  - Pain [Unknown]
  - Overdose [Unknown]
